FAERS Safety Report 8045753-9 (Version None)
Quarter: 2012Q1

REPORT INFORMATION
  Report Type: 
  Country: None (occurrence: None)
  Receive Date: 20120113
  Receipt Date: 20120105
  Transmission Date: 20120608
  Serious: Yes (Hospitalization, Other)
  Sender: FDA-Public Use
  Company Number: PHEH2011US011629

PATIENT
  Sex: Female
  Weight: 107.5 kg

DRUGS (17)
  1. GLEEVEC [Suspect]
     Dosage: 200 MG, DAILY
     Route: 048
     Dates: start: 20080301
  2. GLEEVEC [Suspect]
     Dosage: 400 MG, DAILY
     Route: 048
     Dates: start: 20111101
  3. HYDROCHLOROTHIAZIDE [Concomitant]
     Dosage: 12.5 MG, UNK
  4. CEFTRIAXONE [Concomitant]
     Dosage: 1 G, DAILY
     Route: 042
     Dates: start: 20111101
  5. METOPROLOL TARTRATE [Concomitant]
     Dosage: 25 MG, DAILY
     Route: 048
  6. COLACE [Concomitant]
     Dosage: 100 MG, BID
  7. ACETYLSALICYLIC ACID SRT [Concomitant]
     Dosage: 325 MG, DAILY
     Route: 048
  8. NAPROSYN [Concomitant]
  9. LISINOPRIL [Concomitant]
     Dosage: 2.5 MG, UNK
  10. POTASSIUM CHLORIDE [Concomitant]
  11. PROMETHAZINE [Concomitant]
  12. GLEEVEC [Suspect]
     Indication: CHRONIC MYELOID LEUKAEMIA
     Dosage: 400 MG, DAILY
     Route: 050
     Dates: start: 20051110
  13. GLUCOSAMINE [Concomitant]
  14. IBUPROFEN [Concomitant]
  15. AZITHROMYCIN [Concomitant]
     Dosage: 500 MG, DAILY
     Route: 042
     Dates: start: 20111101
  16. FAMOTIDINE [Concomitant]
     Dosage: 20 MG, BID
     Route: 048
  17. SENNA [Concomitant]

REACTIONS (24)
  - PALPITATIONS [None]
  - GASTROOESOPHAGEAL REFLUX DISEASE [None]
  - DYSPNOEA [None]
  - PNEUMONIA [None]
  - HAEMOPTYSIS [None]
  - HYPERHIDROSIS [None]
  - WHITE BLOOD CELL COUNT INCREASED [None]
  - COUGH [None]
  - JOINT INJURY [None]
  - HYPOTENSION [None]
  - OBESITY [None]
  - SYNCOPE [None]
  - CHEST DISCOMFORT [None]
  - LEFT VENTRICULAR DYSFUNCTION [None]
  - OROPHARYNGEAL PAIN [None]
  - HYPERTENSIVE CARDIOMYOPATHY [None]
  - NAUSEA [None]
  - FALL [None]
  - HYPERLIPIDAEMIA [None]
  - ABDOMINAL DISCOMFORT [None]
  - HYPOKALAEMIA [None]
  - DIZZINESS [None]
  - HYPEREOSINOPHILIC SYNDROME [None]
  - HYPERTENSION [None]
